FAERS Safety Report 15982622 (Version 1)
Quarter: 2019Q1

REPORT INFORMATION
  Report Type: Spontaneous
  Country: DE (occurrence: DE)
  Receive Date: 20190219
  Receipt Date: 20190219
  Transmission Date: 20190418
  Serious: Yes (Hospitalization)
  Sender: FDA-Public Use
  Company Number: DE-PFIZER INC-2019065892

PATIENT
  Age: 16 Year
  Sex: Female
  Weight: 76 kg

DRUGS (1)
  1. SERTRALINE HCL [Suspect]
     Active Substance: SERTRALINE HYDROCHLORIDE
     Indication: DEPRESSION
     Dosage: 150 MG, 1X/DAY (DURATION: 2-3 MONTHS)
     Route: 048

REACTIONS (4)
  - Weight increased [Not Recovered/Not Resolved]
  - Product use issue [Recovered/Resolved]
  - Gait inability [Not Recovered/Not Resolved]
  - Oedema peripheral [Not Recovered/Not Resolved]

NARRATIVE: CASE EVENT DATE: 20190117
